FAERS Safety Report 10025805 (Version 1)
Quarter: 2014Q1

REPORT INFORMATION
  Report Type: Spontaneous
  Country: GB (occurrence: None)
  Receive Date: 20140314
  Receipt Date: 20140314
  Transmission Date: 20141002
  Serious: Yes (Disabling)
  Sender: FDA-Public Use
  Company Number: AUR-APL-2014-02439

PATIENT
  Age: 59 Year
  Sex: Male
  Weight: 81.64 kg

DRUGS (5)
  1. AMLODIPINE [Suspect]
     Indication: HYPERTENSION
     Route: 048
  2. ASPIRIN (ACETYLSALICYLIC ACID) [Concomitant]
  3. ATORVASTATIN (ATORVASTATIN) [Concomitant]
  4. CO-CODAMOL (PANADEINE CO) [Concomitant]
  5. OMEPRAZOLE (OMEPRAZOLE) [Concomitant]

REACTIONS (6)
  - Joint swelling [None]
  - Pain in extremity [None]
  - Anxiety [None]
  - Insomnia [None]
  - Disturbance in attention [None]
  - Fatigue [None]
